FAERS Safety Report 7047382-2 (Version None)
Quarter: 2010Q4

REPORT INFORMATION
  Report Type: 
  Country: None (occurrence: None)
  Receive Date: 20101015
  Receipt Date: 20101005
  Transmission Date: 20110411
  Serious: Yes (Hospitalization, Disabling)
  Sender: FDA-Public Use
  Company Number: DE-ABBOTT-10P-062-0674831-00

PATIENT
  Sex: Male
  Weight: 95 kg

DRUGS (4)
  1. SIXANTONE [Suspect]
     Indication: PROSTATE CANCER
     Route: 058
     Dates: start: 20100616
  2. METAMIZOLE [Concomitant]
     Indication: PRODUCT USED FOR UNKNOWN INDICATION
     Dates: start: 20100104
  3. IBUPROFEN [Concomitant]
     Indication: PRODUCT USED FOR UNKNOWN INDICATION
     Dates: start: 20100104
  4. ANTIANDROGENS [Concomitant]
     Indication: PROSTATE CANCER

REACTIONS (2)
  - METASTASES TO BONE [None]
  - PARAPLEGIA [None]
